FAERS Safety Report 11826589 (Version 3)
Quarter: 2016Q2

REPORT INFORMATION
  Report Type: Spontaneous
  Country: US (occurrence: US)
  Receive Date: 20151211
  Receipt Date: 20160407
  Transmission Date: 20160815
  Serious: Yes (Death, Hospitalization, Other)
  Sender: FDA-Public Use
  Company Number: US-JNJFOC-20151208146

PATIENT
  Age: 54 Year
  Sex: Male

DRUGS (5)
  1. OMEPRAZOLE. [Concomitant]
     Active Substance: OMEPRAZOLE
     Dates: start: 20151203
  2. OXYCODONE [Concomitant]
     Active Substance: OXYCODONE
  3. PREDNISONE. [Concomitant]
     Active Substance: PREDNISONE
     Dates: start: 20151203
  4. IMBRUVICA [Suspect]
     Active Substance: IBRUTINIB
     Indication: CHRONIC LYMPHOCYTIC LEUKAEMIA
     Route: 048
     Dates: start: 20151113, end: 20151123
  5. HYDROCODONE [Concomitant]
     Active Substance: HYDROCODONE
     Dosage: PRN

REACTIONS (8)
  - Disease progression [Not Recovered/Not Resolved]
  - Acute kidney injury [Fatal]
  - Ecchymosis [Not Recovered/Not Resolved]
  - Pulmonary haemorrhage [Not Recovered/Not Resolved]
  - Drug-induced liver injury [Unknown]
  - Hepatic failure [Fatal]
  - Lymphohistiocytosis [Not Recovered/Not Resolved]
  - Pancreatitis haemorrhagic [Not Recovered/Not Resolved]

NARRATIVE: CASE EVENT DATE: 2015
